FAERS Safety Report 17235338 (Version 2)
Quarter: 2020Q1

REPORT INFORMATION
  Report Type: Report from Study
  Country: US (occurrence: US)
  Receive Date: 20200106
  Receipt Date: 20200305
  Transmission Date: 20200409
  Serious: Yes (Hospitalization, Other)
  Sender: FDA-Public Use
  Company Number: US-SA-2018SA154970

PATIENT
  Age: 40 Year
  Sex: Female

DRUGS (2)
  1. ALEMTUZUMAB [Suspect]
     Active Substance: ALEMTUZUMAB
     Indication: MULTIPLE SCLEROSIS
     Dosage: 12 MG, QD
     Route: 041
     Dates: start: 20180514, end: 20180516
  2. ALEMTUZUMAB [Suspect]
     Active Substance: ALEMTUZUMAB
     Dosage: 12 MG, QD
     Route: 041
     Dates: start: 20170508, end: 20170512

REACTIONS (13)
  - Neutrophil count decreased [Unknown]
  - Feeling hot [Not Recovered/Not Resolved]
  - Lymphocyte count decreased [Unknown]
  - Poor venous access [Unknown]
  - Throat irritation [Not Recovered/Not Resolved]
  - White blood cell count decreased [Unknown]
  - Neutropenia [Unknown]
  - Immune thrombocytopenic purpura [Unknown]
  - Malaise [Not Recovered/Not Resolved]
  - Basedow^s disease [Unknown]
  - Platelet count decreased [Unknown]
  - Contusion [Unknown]
  - Urinary tract infection [Unknown]

NARRATIVE: CASE EVENT DATE: 201806
